FAERS Safety Report 15374759 (Version 1)
Quarter: 2018Q3

REPORT INFORMATION
  Report Type: Spontaneous
  Country: CN (occurrence: CN)
  Receive Date: 20180912
  Receipt Date: 20180912
  Transmission Date: 20181010
  Serious: Yes (Other)
  Sender: FDA-Public Use
  Company Number: CN-ROCHE-2181322

PATIENT
  Age: 3 Year
  Sex: Male

DRUGS (1)
  1. GANCICLOVIR. [Suspect]
     Active Substance: GANCICLOVIR
     Indication: HAND-FOOT-AND-MOUTH DISEASE
     Route: 041
     Dates: start: 2015, end: 2015

REACTIONS (7)
  - Eosinophil count decreased [Unknown]
  - Troponin [Unknown]
  - Electroencephalogram abnormal [Unknown]
  - Off label use [Unknown]
  - Myocardial necrosis marker increased [Unknown]
  - Intentional product use issue [Unknown]
  - Growth retardation [Unknown]

NARRATIVE: CASE EVENT DATE: 2015
